FAERS Safety Report 6506352-0 (Version None)
Quarter: 2009Q4

REPORT INFORMATION
  Report Type: 
  Country: None (occurrence: None)
  Receive Date: 20091218
  Receipt Date: 20091210
  Transmission Date: 20100525
  Serious: Yes (Other)
  Sender: FDA-Public Use
  Company Number: CA-ABBOTT-09P-028-0613757-00

PATIENT
  Sex: Female
  Weight: 76.726 kg

DRUGS (3)
  1. HUMIRA [Suspect]
     Indication: RHEUMATOID ARTHRITIS
     Route: 058
     Dates: start: 20071011
  2. HUMIRA [Suspect]
  3. PENICILLIN VK [Concomitant]
     Indication: PROPHYLAXIS
     Dosage: 4 PILLS

REACTIONS (3)
  - GINGIVAL RECESSION [None]
  - RHEUMATOID ARTHRITIS [None]
  - TOOTH DEPOSIT [None]
